FAERS Safety Report 14706905 (Version 1)
Quarter: 2018Q2

REPORT INFORMATION
  Report Type: Spontaneous
  Country: US (occurrence: US)
  Receive Date: 20180403
  Receipt Date: 20180403
  Transmission Date: 20180711
  Serious: Yes (Other)
  Sender: FDA-Public Use
  Company Number: US-BEH-2018089256

PATIENT
  Sex: Female
  Weight: 45.35 kg

DRUGS (22)
  1. PRIVIGEN [Suspect]
     Active Substance: HUMAN IMMUNOGLOBULIN G
     Indication: CREST SYNDROME
  2. DEXTROSE. [Concomitant]
     Active Substance: DEXTROSE
  3. ALBUTEROL                          /00139501/ [Concomitant]
     Active Substance: ALBUTEROL
  4. NATURAL TEARS [Concomitant]
     Active Substance: POLYVINYL ALCOHOL\POVIDONE
  5. NYSTATIN. [Concomitant]
     Active Substance: NYSTATIN
  6. SODIUM CHLORIDE. [Concomitant]
     Active Substance: SODIUM CHLORIDE
  7. PRIVIGEN [Suspect]
     Active Substance: HUMAN IMMUNOGLOBULIN G
     Indication: ARTERITIS
     Dosage: UNK
     Route: 042
  8. LIDOCAINE. [Concomitant]
     Active Substance: LIDOCAINE
  9. ALLEGRA [Concomitant]
     Active Substance: FEXOFENADINE HYDROCHLORIDE
  10. MYCOPHENOLATE [Concomitant]
     Active Substance: MYCOPHENOLIC ACID
  11. ALEVE [Concomitant]
     Active Substance: NAPROXEN SODIUM
  12. ACETAMINOPHEN. [Concomitant]
     Active Substance: ACETAMINOPHEN
  13. METHOTREXATE. [Concomitant]
     Active Substance: METHOTREXATE
  14. ZINC. [Concomitant]
     Active Substance: ZINC
  15. PLAQUENIL                          /00072602/ [Concomitant]
     Active Substance: HYDROXYCHLOROQUINE DIPHOSPHATE
  16. FOLIC ACID. [Concomitant]
     Active Substance: FOLIC ACID
  17. NAPROXEN. [Concomitant]
     Active Substance: NAPROXEN
  18. PRIVIGEN [Suspect]
     Active Substance: HUMAN IMMUNOGLOBULIN G
     Indication: SYSTEMIC SCLERODERMA
     Dosage: 40 G, EVERY 4 WEEKS
     Route: 042
     Dates: start: 20150427
  19. DIPHENHYDRAMINE. [Concomitant]
     Active Substance: DIPHENHYDRAMINE
  20. EPINEPHRINE. [Concomitant]
     Active Substance: EPINEPHRINE
  21. VYVANSE [Concomitant]
     Active Substance: LISDEXAMFETAMINE DIMESYLATE
  22. OMEGA 3                            /01333901/ [Concomitant]
     Active Substance: FISH OIL\TOCOPHEROL

REACTIONS (3)
  - Hyperhidrosis [Unknown]
  - Cough [Unknown]
  - Chest pain [Unknown]
